FAERS Safety Report 9643329 (Version 2)
Quarter: 2014Q2

REPORT INFORMATION
  Report Type: Spontaneous
  Country: US (occurrence: None)
  Receive Date: 20131022
  Receipt Date: 20140401
  Transmission Date: 20141212
  Serious: No
  Sender: FDA-Public Use
  Company Number: 2013-US-001860

PATIENT
  Age: 33 Year
  Sex: Female

DRUGS (4)
  1. XYREM [Suspect]
     Indication: NARCOLEPSY
     Route: 048
     Dates: start: 201304, end: 201304
  2. XYREM [Suspect]
     Indication: CATAPLEXY
     Route: 048
     Dates: start: 201304, end: 201304
  3. IBUPROFEN (IBUPROFEN) [Concomitant]
  4. FLONASE (FLUTICASONE PROPIONATE) [Concomitant]

REACTIONS (1)
  - Mood swings [None]
